FAERS Safety Report 12630676 (Version 1)
Quarter: 2016Q3

REPORT INFORMATION
  Report Type: Spontaneous
  Country: JP (occurrence: JP)
  Receive Date: 20160808
  Receipt Date: 20160808
  Transmission Date: 20161109
  Serious: Yes (Other)
  Sender: FDA-Public Use
  Company Number: JP-B.I. PHARMACEUTICALS,INC./RIDGEFIELD-2016-BI-44904NB

PATIENT
  Age: 79 Year
  Sex: Male
  Weight: 39.6 kg

DRUGS (6)
  1. TRAZENTA [Suspect]
     Active Substance: LINAGLIPTIN
     Indication: TYPE 2 DIABETES MELLITUS
     Dosage: 5 MG
     Route: 048
     Dates: start: 20160311, end: 20160603
  2. AMITIZA [Concomitant]
     Active Substance: LUBIPROSTONE
     Indication: CONSTIPATION
     Dosage: 24 MCG
     Route: 048
     Dates: start: 20151117
  3. MOSAPRIDE CITRATE HYDRATE [Concomitant]
     Active Substance: MOSAPRIDE CITRATE DIHYDRATE
     Indication: GASTROOESOPHAGEAL REFLUX DISEASE
     Dosage: 15 MG
     Route: 048
     Dates: start: 20151127
  4. BAYASPIRIN [Concomitant]
     Active Substance: ASPIRIN
     Indication: VASCULAR DEVICE USER
     Dosage: 100 MG
     Route: 048
     Dates: start: 20151117
  5. ALLEGRA [Concomitant]
     Active Substance: FEXOFENADINE HYDROCHLORIDE
     Indication: PRURITUS
     Dosage: 120 MG
     Route: 048
     Dates: start: 20151127
  6. NEXIUM [Concomitant]
     Active Substance: ESOMEPRAZOLE MAGNESIUM
     Indication: GASTROOESOPHAGEAL REFLUX DISEASE
     Dosage: 20 MG
     Route: 048
     Dates: start: 20151117

REACTIONS (1)
  - Acquired epidermolysis bullosa [Not Recovered/Not Resolved]

NARRATIVE: CASE EVENT DATE: 20160506
